FAERS Safety Report 9832535 (Version 1)
Quarter: 2014Q1

REPORT INFORMATION
  Report Type: Spontaneous
  Country: US (occurrence: US)
  Receive Date: 20140121
  Receipt Date: 20140121
  Transmission Date: 20141002
  Serious: No
  Sender: FDA-Public Use
  Company Number: US-B.I. PHARMACEUTICALS,INC./RIDGEFIELD-2014-BI-01619BP

PATIENT
  Age: 78 Year
  Sex: Female
  Weight: 62 kg

DRUGS (6)
  1. SPIRIVA [Suspect]
     Indication: CHRONIC OBSTRUCTIVE PULMONARY DISEASE
     Dosage: 18 MCG
     Route: 055
     Dates: start: 201312
  2. IPRATROPIUM BROMIDE [Concomitant]
     Dosage: NASAL SPRAY
     Route: 045
  3. FLONASE [Concomitant]
     Dosage: NASAL SPRAY
     Route: 045
  4. LOVASTATIN [Concomitant]
     Indication: BLOOD CHOLESTEROL INCREASED
     Dosage: 40 MG
     Route: 048
  5. ATENOLOL [Concomitant]
     Indication: HYPERTENSION
     Dosage: 25 MG
     Route: 048
  6. ATIVAN [Concomitant]
     Indication: ANXIETY
     Dosage: 1 MG
     Route: 048

REACTIONS (2)
  - Increased viscosity of nasal secretion [Not Recovered/Not Resolved]
  - Epistaxis [Recovered/Resolved]
